FAERS Safety Report 23623150 (Version 2)
Quarter: 2024Q1

REPORT INFORMATION
  Report Type: Report from Study
  Country: ES (occurrence: None)
  Receive Date: 20240312
  Receipt Date: 20240312
  Transmission Date: 20240410
  Serious: Yes (Other)
  Sender: FDA-Public Use
  Company Number: 2024A056150

PATIENT
  Age: 6 Year
  Sex: Female
  Weight: 30.3 kg

DRUGS (4)
  1. KOSELUGO [Suspect]
     Active Substance: SELUMETINIB
     Indication: Optic glioma
     Route: 048
     Dates: start: 20230522
  2. KOSELUGO [Suspect]
     Active Substance: SELUMETINIB
     Indication: Optic glioma
     Route: 048
     Dates: start: 20240109
  3. KOSELUGO [Suspect]
     Active Substance: SELUMETINIB
     Indication: Optic glioma
     Route: 048
     Dates: start: 20240206
  4. TRIMETROPRIM-SULFAMETOXAZOL [Concomitant]
     Indication: Antifungal prophylaxis

REACTIONS (2)
  - Blood creatine phosphokinase increased [Recovered/Resolved]
  - Off label use [Unknown]

NARRATIVE: CASE EVENT DATE: 20240206
